FAERS Safety Report 11952632 (Version 2)
Quarter: 2016Q1

REPORT INFORMATION
  Report Type: Report from Study
  Country: CN (occurrence: CN)
  Receive Date: 20160126
  Receipt Date: 20160208
  Transmission Date: 20160526
  Serious: Yes (Other)
  Sender: FDA-Public Use
  Company Number: CN-ELI_LILLY_AND_COMPANY-CN201601000276

PATIENT
  Age: 59 Year
  Sex: Male
  Weight: 70 kg

DRUGS (2)
  1. INSULIN, LISPRO [Suspect]
     Active Substance: INSULIN LISPRO
     Indication: DIABETES MELLITUS
     Dosage: 10 DF, EACH MORNING
     Route: 058
     Dates: start: 20150930
  2. INSULIN, LISPRO [Suspect]
     Active Substance: INSULIN LISPRO
     Dosage: 8 DF, EACH EVENING
     Route: 058
     Dates: start: 20150930

REACTIONS (5)
  - Weight increased [Unknown]
  - Hypoglycaemia [Unknown]
  - Feeling abnormal [Unknown]
  - Hypophagia [Unknown]
  - Fall [Unknown]

NARRATIVE: CASE EVENT DATE: 201511
